FAERS Safety Report 19258082 (Version 1)
Quarter: 2021Q2

REPORT INFORMATION
  Report Type: Spontaneous
  Country: US (occurrence: US)
  Receive Date: 20210514
  Receipt Date: 20210514
  Transmission Date: 20210717
  Serious: No
  Sender: FDA-Public Use
  Company Number: None

PATIENT
  Age: 72 Year
  Sex: Male

DRUGS (1)
  1. FUROSEMIDE (FUROSEMIDE 80MG TAB) [Suspect]
     Active Substance: FUROSEMIDE
     Indication: HYPERTENSION
     Dates: start: 20210429, end: 20210506

REACTIONS (3)
  - Acute kidney injury [None]
  - Blood creatine increased [None]
  - Blood urea increased [None]

NARRATIVE: CASE EVENT DATE: 20210505
